FAERS Safety Report 8015486-3 (Version None)
Quarter: 2011Q4

REPORT INFORMATION
  Report Type: 
  Country: None (occurrence: None)
  Receive Date: 20111223
  Receipt Date: 20111212
  Transmission Date: 20120403
  Serious: Yes (Other)
  Sender: FDA-Public Use
  Company Number: FK201102939

PATIENT
  Age: 34 Year
  Sex: Male

DRUGS (3)
  1. LEVETIRACETAM [Concomitant]
  2. DEXAMETHASONE SODIUM PHOSPHATE [Suspect]
     Indication: PROPHYLAXIS
     Dosage: 800 MG, ADMINISTERED PRE AND POST SURGERY 1 MG, TAPERED: 1MG/PER DAY AFTER 2 WEEKS
  3. LENITOIN [Concomitant]

REACTIONS (3)
  - PANNICULITIS LOBULAR [None]
  - CUSHINGOID [None]
  - WEIGHT INCREASED [None]
